FAERS Safety Report 4283784-5 (Version None)
Quarter: 2004Q1

REPORT INFORMATION
  Report Type: 
  Country: None (occurrence: None)
  Receive Date: 20040115
  Receipt Date: 20021211
  Transmission Date: 20041129
  Serious: Yes (Hospitalization)
  Sender: FDA-Public Use
  Company Number: NSADSS2002040211

PATIENT

DRUGS (6)
  1. DOXIL [Suspect]
     Indication: ENDOMETRIAL CANCER
     Dosage: SEE IMAGE
     Route: 041
     Dates: start: 20021022, end: 20021022
  2. DOXIL [Suspect]
     Indication: ENDOMETRIAL CANCER
     Dosage: SEE IMAGE
     Route: 041
     Dates: start: 20021119
  3. ADRIAMYCIN PFS [Suspect]
     Indication: ENDOMETRIAL CANCER
     Dosage: 50 MG/M2, INTRAVENOUS DRIP
     Route: 041
     Dates: start: 20021022, end: 20021022
  4. IFOSFAMIDE [Concomitant]
  5. CISPLATIN [Concomitant]
  6. MESNA [Concomitant]

REACTIONS (4)
  - FEBRILE NEUTROPENIA [None]
  - HYPOTENSION [None]
  - PAIN IN EXTREMITY [None]
  - SEPTIC SHOCK [None]
